FAERS Safety Report 25517906 (Version 6)
Quarter: 2025Q3

REPORT INFORMATION
  Report Type: Report from Study
  Country: CA (occurrence: CA)
  Receive Date: 20250704
  Receipt Date: 20250930
  Transmission Date: 20251021
  Serious: Yes (Hospitalization, Other)
  Sender: ALEXION PHARMACEUTICALS
  Company Number: CA-AstraZeneca-CH-00900421A

PATIENT
  Sex: Male
  Weight: 67.12 kg

DRUGS (7)
  1. TEZEPELUMAB [Suspect]
     Active Substance: TEZEPELUMAB
     Indication: Asthma
  2. TEZEPELUMAB [Suspect]
     Active Substance: TEZEPELUMAB
  3. PULMICORT TURBUHALER [Concomitant]
     Active Substance: BUDESONIDE
     Dosage: 200 MILLIGRAM, BID
     Route: 065
     Dates: start: 20250213
  4. PULMICORT TURBUHALER [Concomitant]
     Active Substance: BUDESONIDE
     Route: 065
  5. VENTOLIN [Concomitant]
     Active Substance: ALBUTEROL SULFATE
     Route: 065
  6. BREZTRI [Concomitant]
     Active Substance: BUDESONIDE\FORMOTEROL\GLYCOPYRROLATE
     Route: 065
  7. SINGULAIR [Concomitant]
     Active Substance: MONTELUKAST SODIUM
     Route: 065

REACTIONS (20)
  - Nephrolithiasis [Not Recovered/Not Resolved]
  - Sepsis [Unknown]
  - Vomiting [Unknown]
  - Thrombosis [Unknown]
  - Cough [Unknown]
  - Pain [Unknown]
  - Gait disturbance [Unknown]
  - Dyspnoea [Unknown]
  - Malaise [Unknown]
  - Cardioversion [Unknown]
  - Near death experience [Unknown]
  - Septic shock [Unknown]
  - Asthenia [Unknown]
  - Stress [Unknown]
  - Haemorrhage [Unknown]
  - Muscle atrophy [Unknown]
  - Loss of consciousness [Unknown]
  - Inappropriate schedule of product administration [Unknown]
  - Nephrolithiasis [Unknown]
  - Cardiac disorder [Unknown]
